FAERS Safety Report 6243957-9 (Version None)
Quarter: 2009Q2

REPORT INFORMATION
  Report Type: 
  Country: None (occurrence: None)
  Receive Date: 20090623
  Receipt Date: 20090609
  Transmission Date: 20091009
  Serious: Yes (Hospitalization)
  Sender: FDA-Public Use
  Company Number: TRP_06279_2009

PATIENT
  Age: 51 Year
  Sex: Male

DRUGS (5)
  1. RIBAVIRIN [Suspect]
     Indication: HEPATITIS C
     Dosage: DF
     Dates: start: 20020601
  2. PEG-INTRON [Suspect]
     Indication: HEPATITIS C
     Dosage: DF WEEKLY
     Dates: start: 20020601
  3. LITHIUM CARBONATE [Concomitant]
  4. SERTRALINE [Concomitant]
  5. LEVOTHYROXINE SODIUM [Concomitant]

REACTIONS (7)
  - CONDITION AGGRAVATED [None]
  - DEPRESSION [None]
  - FLAT AFFECT [None]
  - HYPOMANIA [None]
  - MANIA [None]
  - PSYCHOMOTOR RETARDATION [None]
  - SUICIDAL IDEATION [None]
